FAERS Safety Report 5818408-6 (Version None)
Quarter: 2008Q3

REPORT INFORMATION
  Report Type: 
  Country: None (occurrence: None)
  Receive Date: 20080716
  Receipt Date: 20080703
  Transmission Date: 20090109
  Serious: Yes (Disabling)
  Sender: FDA-Public Use
  Company Number: FABR-1000318

PATIENT
  Age: 59 Year
  Sex: Male
  Weight: 60.7 kg

DRUGS (1)
  1. FABRAZYME [Suspect]
     Indication: FABRY'S DISEASE
     Dosage: 30 MG, 1X/W, INTRAVENOUS
     Route: 042

REACTIONS (2)
  - ANOREXIA [None]
  - HYPOTENSION [None]
